FAERS Safety Report 9051221 (Version 1)
Quarter: 2013Q1

REPORT INFORMATION
  Report Type: Spontaneous
  Country: FR (occurrence: FR)
  Receive Date: 20130206
  Receipt Date: 20130206
  Transmission Date: 20140127
  Serious: Yes (Death, Life-Threatening, Other)
  Sender: FDA-Public Use
  Company Number: FR-MERCK-1302FRA000757

PATIENT
  Age: 66 None
  Sex: Male

DRUGS (11)
  1. CHIBRO-PROSCAR [Suspect]
     Dosage: UNK
     Route: 048
     Dates: start: 20120110, end: 20120118
  2. DEROXAT [Suspect]
     Dosage: UNK
     Route: 048
     Dates: start: 20120112, end: 20120118
  3. CHIBROXINE [Suspect]
     Dosage: 03 UNK, UNK
     Route: 047
     Dates: start: 20111213, end: 20120118
  4. REVATIO [Suspect]
     Dosage: UNK
     Route: 048
     Dates: start: 20120115, end: 20120120
  5. XANAX [Suspect]
     Dosage: UNK
     Route: 048
     Dates: start: 20120107, end: 20120118
  6. TRACLEER [Suspect]
     Dosage: UNK
     Route: 048
     Dates: start: 20111129, end: 20120120
  7. XATRAL [Suspect]
     Dosage: UNK
     Route: 048
     Dates: start: 20111208, end: 20120118
  8. IMOVANE [Suspect]
     Dosage: 1 UNK, UNK
     Route: 048
     Dates: start: 20111201, end: 20120118
  9. SOLUPRED [Suspect]
     Dosage: 10 MG, QD
     Route: 048
     Dates: start: 20111201, end: 20120120
  10. PROCORALAN [Concomitant]
     Dosage: UNK
  11. INEXIUM [Concomitant]

REACTIONS (1)
  - Toxic epidermal necrolysis [Fatal]
